FAERS Safety Report 5103909-9 (Version None)
Quarter: 2006Q4

REPORT INFORMATION
  Report Type: 
  Country: None (occurrence: None)
  Receive Date: 20060908
  Receipt Date: 20060907
  Transmission Date: 20070319
  Serious: Yes (Other)
  Sender: FDA-Public Use
  Company Number: 225844

PATIENT
  Sex: Female

DRUGS (3)
  1. AVASTIN [Suspect]
     Indication: DRUG USE FOR UNKNOWN INDICATION
  2. TAXOTERE [Concomitant]
  3. XELODA [Concomitant]

REACTIONS (2)
  - BLOOD POTASSIUM DECREASED [None]
  - HYPOMAGNESAEMIA [None]
